FAERS Safety Report 10392373 (Version 12)
Quarter: 2016Q1

REPORT INFORMATION
  Report Type: Report from Study
  Country: ES (occurrence: ES)
  Receive Date: 20140819
  Receipt Date: 20160121
  Transmission Date: 20160525
  Serious: Yes (Life-Threatening, Hospitalization)
  Sender: FDA-Public Use
  Company Number: ES-ROCHE-1446634

PATIENT
  Age: 77 Year
  Sex: Female
  Weight: 66 kg

DRUGS (16)
  1. OBINUTUZUMAB [Suspect]
     Active Substance: OBINUTUZUMAB
     Dosage: C1D8?THERAPY WAS RESTARTED ON 27/AUG/2014.
     Route: 042
     Dates: start: 20140827, end: 20140827
  2. BENDAMUSTINE [Suspect]
     Active Substance: BENDAMUSTINE
     Indication: CHRONIC LYMPHOCYTIC LEUKAEMIA
     Dosage: PLANNED DOSE: 70 MG/M2?C1D1
     Route: 042
     Dates: start: 20140801, end: 20140801
  3. URBASON [Concomitant]
     Active Substance: METHYLPREDNISOLONE
     Route: 042
     Dates: start: 20140801, end: 20150115
  4. NYSTATIN. [Concomitant]
     Active Substance: NYSTATIN
     Dosage: MOUTH WASH (BUCAL)
     Route: 048
     Dates: start: 20140801, end: 20150123
  5. POLARAMINE [Concomitant]
     Active Substance: DEXCHLORPHENIRAMINE MALEATE
     Route: 042
     Dates: start: 20140801, end: 20150115
  6. METAMIZOL [Concomitant]
     Active Substance: METAMIZOLE SODIUM
     Route: 042
     Dates: start: 20140801, end: 20140801
  7. BENDAMUSTINE [Suspect]
     Active Substance: BENDAMUSTINE
     Dosage: C1D2 THE CONTINUED AS PER PROTOCOL.
     Route: 042
     Dates: start: 20140802, end: 20140802
  8. OBINUTUZUMAB [Suspect]
     Active Substance: OBINUTUZUMAB
     Dosage: C1D8?THERAPY WAS TEMPORARILY INTERRUPTED ON 15/AUG/2014.
     Route: 042
     Dates: start: 20140808, end: 20140808
  9. GRANISETRON [Concomitant]
     Active Substance: GRANISETRON
     Route: 042
     Dates: start: 20140801, end: 20150115
  10. OBINUTUZUMAB [Suspect]
     Active Substance: OBINUTUZUMAB
     Indication: CHRONIC LYMPHOCYTIC LEUKAEMIA
     Dosage: SPLIT DOSE (100+900) ON DAY 1 AND DAY 2?C1D1
     Route: 042
     Dates: start: 20140801, end: 20140801
  11. SEGURIL [Concomitant]
     Active Substance: FUROSEMIDE
     Route: 042
     Dates: start: 20140801, end: 20140801
  12. METAMIZOL [Concomitant]
     Active Substance: METAMIZOLE SODIUM
     Route: 042
     Dates: start: 20140802, end: 20140802
  13. ORALDINE [Concomitant]
     Dosage: MOUTH WASH
     Route: 048
     Dates: start: 20140801, end: 20150123
  14. OBINUTUZUMAB [Suspect]
     Active Substance: OBINUTUZUMAB
     Dosage: C1D2
     Route: 042
     Dates: start: 20140802, end: 20140802
  15. PARACETAMOL [Concomitant]
     Active Substance: ACETAMINOPHEN
     Route: 042
     Dates: start: 20140801, end: 20150115
  16. NOLOTIL [Concomitant]
     Active Substance: METAMIZOLE
     Route: 042
     Dates: start: 20140801, end: 20140802

REACTIONS (1)
  - Febrile neutropenia [Recovered/Resolved]

NARRATIVE: CASE EVENT DATE: 20140802
